FAERS Safety Report 15694512 (Version 1)
Quarter: 2018Q4

REPORT INFORMATION
  Report Type: Spontaneous
  Country: US (occurrence: US)
  Receive Date: 20181206
  Receipt Date: 20181206
  Transmission Date: 20190205
  Serious: No
  Sender: FDA-Public Use
  Company Number: US-ENDO PHARMACEUTICALS INC-2017-006615

PATIENT
  Age: 49 Year
  Sex: Male
  Weight: 108.84 kg

DRUGS (6)
  1. XIAFLEX [Suspect]
     Active Substance: COLLAGENASE CLOSTRIDIUM HISTOLYTICUM
     Dosage: TREATMENT COURSE #1, TREATMENT CYCLE #4 WITH 2 INJECTIONS
     Route: 026
     Dates: start: 2017, end: 2017
  2. XIAFLEX [Suspect]
     Active Substance: COLLAGENASE CLOSTRIDIUM HISTOLYTICUM
     Dosage: TREATMENT COURSE #1, TREATMENT CYCLE #2 WITH 2 INJECTIONS
     Route: 026
     Dates: start: 2017
  3. XIAFLEX [Suspect]
     Active Substance: COLLAGENASE CLOSTRIDIUM HISTOLYTICUM
     Dosage: TREATMENT COURSE #1, TREATMENT CYCLE #1 WITH 2 INJECTIONS
     Route: 026
     Dates: start: 20170220
  4. XIAFLEX [Suspect]
     Active Substance: COLLAGENASE CLOSTRIDIUM HISTOLYTICUM
     Indication: PEYRONIE^S DISEASE
     Dosage: TREATMENT COURSE #2, TREATMENT CYCLE #2 WITH 2 INJECTIONS
     Route: 026
     Dates: end: 20171002
  5. XIAFLEX [Suspect]
     Active Substance: COLLAGENASE CLOSTRIDIUM HISTOLYTICUM
     Dosage: TREATMENT COURSE #2, TREATMENT CYCLE #1 WITH 2 INJECTIONS
     Route: 026
     Dates: start: 2017
  6. XIAFLEX [Suspect]
     Active Substance: COLLAGENASE CLOSTRIDIUM HISTOLYTICUM
     Dosage: TREATMENT COURSE #1, TREATMENT CYCLE #3 WITH 2 INJECTIONS
     Route: 026
     Dates: start: 2017

REACTIONS (4)
  - Erectile dysfunction [Unknown]
  - Drug ineffective [Not Recovered/Not Resolved]
  - Overdose [Not Recovered/Not Resolved]
  - Penile size reduced [Not Recovered/Not Resolved]

NARRATIVE: CASE EVENT DATE: 2017
